FAERS Safety Report 7609909-9 (Version None)
Quarter: 2011Q3

REPORT INFORMATION
  Report Type: 
  Country: None (occurrence: None)
  Receive Date: 20110714
  Receipt Date: 20110708
  Transmission Date: 20111222
  Serious: Yes (Hospitalization)
  Sender: FDA-Public Use
  Company Number: IT-ABBOTT-11P-083-0734722-00

PATIENT
  Age: 79 Year
  Sex: Female

DRUGS (6)
  1. DEPAKENE [Suspect]
     Indication: MEDICATION ERROR
     Dosage: 600MG (S) DAILY; GASTRO-RESISTANT, ONCE
     Route: 048
     Dates: start: 20110620, end: 20110620
  2. VALSARTAN  AND HYDROCHLOROTHIAZIDE [Concomitant]
     Indication: PRODUCT USED FOR UNKNOWN INDICATION
  3. CORDARONE [Concomitant]
     Indication: PRODUCT USED FOR UNKNOWN INDICATION
  4. CHLORPROMAZINE HCL [Suspect]
     Indication: MEDICATION ERROR
     Dosage: FILM-COATED, ONCE
     Route: 048
     Dates: start: 20110620, end: 20110620
  5. ASCRIPTIN [Concomitant]
     Indication: PRODUCT USED FOR UNKNOWN INDICATION
  6. SPIRIVA [Concomitant]
     Indication: PRODUCT USED FOR UNKNOWN INDICATION

REACTIONS (7)
  - SYNCOPE [None]
  - WRONG DRUG ADMINISTERED [None]
  - ASTHENIA [None]
  - ACCIDENTAL EXPOSURE [None]
  - MEDICATION ERROR [None]
  - SINUS BRADYCARDIA [None]
  - BLOOD PRESSURE DIASTOLIC INCREASED [None]
